FAERS Safety Report 21134622 (Version 1)
Quarter: 2022Q3

REPORT INFORMATION
  Report Type: Spontaneous
  Country: US (occurrence: US)
  Receive Date: 20220727
  Receipt Date: 20220727
  Transmission Date: 20221027
  Serious: Yes (Other)
  Sender: FDA-Public Use
  Company Number: US-TAKEDA-2022TUS049536

PATIENT
  Age: 59 Year
  Sex: Female
  Weight: 63.49 kg

DRUGS (26)
  1. ADDERALL XR [Suspect]
     Active Substance: AMPHETAMINE ASPARTATE\AMPHETAMINE SULFATE\DEXTROAMPHETAMINE SACCHARATE\DEXTROAMPHETAMINE SULFATE
     Indication: Product used for unknown indication
     Dosage: 10 MILLIGRAM, QD
     Route: 048
  2. MAYZENT [Suspect]
     Active Substance: SIPONIMOD
     Indication: Product used for unknown indication
     Dosage: 2 MILLIGRAM, QD
     Route: 048
     Dates: start: 20211115
  3. MAYZENT [Suspect]
     Active Substance: SIPONIMOD
     Dosage: 1 DOSAGE FORM, QD
     Route: 048
  4. AMPYRA [Concomitant]
     Active Substance: DALFAMPRIDINE
     Dosage: 1 DOSAGE FORM, BID
     Route: 048
  5. FLONASE [Concomitant]
     Active Substance: FLUTICASONE PROPIONATE
     Indication: Multiple allergies
  6. AMLODIPINE [Concomitant]
     Active Substance: AMLODIPINE BESYLATE
     Dosage: 1 DOSAGE FORM, QD
     Route: 048
  7. SOLU-MEDROL [Concomitant]
     Active Substance: METHYLPREDNISOLONE SODIUM SUCCINATE
     Dosage: UNK UNK, QD
     Route: 042
  8. POTASSIUM GLUCONATE [Concomitant]
     Active Substance: POTASSIUM GLUCONATE
     Dosage: 1 DOSAGE FORM, QD
     Route: 048
  9. CHOLECALCIFEROL [Concomitant]
     Active Substance: CHOLECALCIFEROL
     Dosage: 1 DOSAGE FORM, QD
     Route: 048
  10. CHOLECALCIFEROL [Concomitant]
     Active Substance: CHOLECALCIFEROL
     Dosage: 5000 INTERNATIONAL UNIT, QD
  11. OMEGA-3 FATTY ACIDS;XANTOFYL;ZEAXANTHIN [Concomitant]
     Dosage: 1 DOSAGE FORM, 3/WEEK
     Route: 048
  12. ALENDRONATE [Concomitant]
     Active Substance: ALENDRONATE SODIUM
     Dosage: 1 DOSAGE FORM, 1/WEEK
     Route: 048
  13. LEVOTHYROXINE [Concomitant]
     Active Substance: LEVOTHYROXINE
     Dosage: 1 DOSAGE FORM, QD
     Route: 048
  14. CALCIUM [Concomitant]
     Active Substance: CALCIUM
     Dosage: 1 DOSAGE FORM, QD
     Route: 048
  15. MINERALS\VITAMINS [Concomitant]
     Active Substance: MINERALS\VITAMINS
     Dosage: 1 DOSAGE FORM, QD
     Route: 048
  16. ADVIL [Concomitant]
     Active Substance: IBUPROFEN
     Dosage: UNK UNK, QD
     Route: 048
  17. MYRBETRIQ [Concomitant]
     Active Substance: MIRABEGRON
     Indication: Bladder dysfunction
     Dosage: 1 DOSAGE FORM, QD
     Route: 048
  18. LYRICA [Concomitant]
     Active Substance: PREGABALIN
     Dosage: 1 DOSAGE FORM, BID
     Route: 048
  19. CANNABIS SATIVA SUBSP. INDICA TOP [Concomitant]
     Active Substance: CANNABIS SATIVA SUBSP. INDICA TOP
     Indication: Insomnia
  20. CANNABIS SATIVA SUBSP. INDICA TOP [Concomitant]
     Active Substance: CANNABIS SATIVA SUBSP. INDICA TOP
     Indication: Muscle spasms
  21. VALIUM [Concomitant]
     Active Substance: DIAZEPAM
     Dosage: UNK, Q30MIN
     Route: 048
  22. Covid-19 vaccine [Concomitant]
     Dosage: UNK
     Dates: start: 202110
  23. ZYRTEC [Concomitant]
     Active Substance: CETIRIZINE HYDROCHLORIDE
  24. BENADRYL [Concomitant]
     Active Substance: DIPHENHYDRAMINE HYDROCHLORIDE
  25. CANNABIS SATIVA SUBSP. INDICA TOP [Concomitant]
     Active Substance: CANNABIS SATIVA SUBSP. INDICA TOP
  26. PROVIGIL [Concomitant]
     Active Substance: MODAFINIL
     Dosage: 1 DOSAGE FORM, QD
     Route: 048

REACTIONS (5)
  - Multiple sclerosis relapse [Recovering/Resolving]
  - Drug ineffective [Unknown]
  - Intervertebral disc degeneration [Unknown]
  - Asthenia [Unknown]
  - Gait disturbance [Unknown]

NARRATIVE: CASE EVENT DATE: 20201016
